FAERS Safety Report 5637692-5 (Version None)
Quarter: 2008Q1

REPORT INFORMATION
  Report Type: 
  Country: None (occurrence: None)
  Receive Date: 20080220
  Receipt Date: 20080211
  Transmission Date: 20080703
  Serious: Yes (Hospitalization)
  Sender: FDA-Public Use
  Company Number: CERZ-1000072

PATIENT
  Age: 3 Year
  Sex: Male
  Weight: 11.6 kg

DRUGS (1)
  1. CEREZYME [Suspect]
     Indication: GAUCHER'S DISEASE
     Dosage: 1400 U, Q2W, INTRAVENOUS
     Route: 042
     Dates: start: 20060830

REACTIONS (1)
  - OXYGEN SATURATION DECREASED [None]
